FAERS Safety Report 5456455-7 (Version None)
Quarter: 2007Q3

REPORT INFORMATION
  Report Type: 
  Country: None (occurrence: None)
  Receive Date: 20070914
  Receipt Date: 20070914
  Transmission Date: 20080115
  Serious: Yes (Life-Threatening, Hospitalization, Disabling, Other)
  Sender: FDA-Public Use
  Company Number: None

PATIENT
  Age: 36 Year
  Sex: Male
  Weight: 81.6475 kg

DRUGS (2)
  1. SEROQUEL [Suspect]
     Indication: SLEEP DISORDER
     Dosage: 200MG  3 XBID  PO
     Route: 048
     Dates: start: 20050101, end: 20070813
  2. SEROQUEL [Suspect]
     Indication: SLEEP DISORDER
     Dosage: 200MG  3 XBID  PO
     Route: 048
     Dates: start: 20070915, end: 20070915

REACTIONS (1)
  - MENTAL DISORDER [None]
